FAERS Safety Report 16540965 (Version 1)
Quarter: 2019Q3

REPORT INFORMATION
  Report Type: Spontaneous
  Country: US (occurrence: US)
  Receive Date: 20190708
  Receipt Date: 20190708
  Transmission Date: 20191004
  Serious: No
  Sender: FDA-Public Use
  Company Number: US-TEVA-2019-US-1066401

PATIENT
  Sex: Female

DRUGS (2)
  1. CLONAZEPAM TABLET ACTAVIS [Suspect]
     Active Substance: CLONAZEPAM
     Indication: PANIC ATTACK
  2. CLONAZEPAM TABLET ACTAVIS [Suspect]
     Active Substance: CLONAZEPAM
     Indication: ANXIETY
     Route: 065

REACTIONS (3)
  - Drug ineffective [Unknown]
  - Anxiety [Unknown]
  - Product substitution issue [Unknown]
